FAERS Safety Report 10195355 (Version 2)
Quarter: 2014Q2

REPORT INFORMATION
  Report Type: Spontaneous
  Country: FR (occurrence: FR)
  Receive Date: 20140526
  Receipt Date: 20140617
  Transmission Date: 20141212
  Serious: Yes (Other)
  Sender: FDA-Public Use
  Company Number: FR-ABBVIE-14P-056-1239373-00

PATIENT
  Sex: Female
  Weight: 49 kg

DRUGS (1)
  1. HUMIRA [Suspect]
     Indication: PSORIASIS
     Route: 058
     Dates: start: 200811

REACTIONS (3)
  - Melanocytic naevus [Not Recovered/Not Resolved]
  - Lentigo [Not Recovered/Not Resolved]
  - Rash [Not Recovered/Not Resolved]
